FAERS Safety Report 7232497-6 (Version None)
Quarter: 2011Q1

REPORT INFORMATION
  Report Type: 
  Country: None (occurrence: None)
  Receive Date: 20110107
  Receipt Date: 20101221
  Transmission Date: 20110831
  Serious: Yes (Other)
  Sender: FDA-Public Use
  Company Number: 2010P1003541

PATIENT
  Sex: Male

DRUGS (1)
  1. CLOTRIMAZOLE/BETAMETHASONE DIPROPIONATE CREAM USP 1%/0.05% (NO PREF. N [Suspect]
     Dates: start: 20100101

REACTIONS (3)
  - NERVOUS SYSTEM DISORDER [None]
  - PRODUCT TAMPERING [None]
  - SKIN DISCOLOURATION [None]
